FAERS Safety Report 8376141-3 (Version None)
Quarter: 2012Q2

REPORT INFORMATION
  Report Type: 
  Country: None (occurrence: None)
  Receive Date: 20120522
  Receipt Date: 20120518
  Transmission Date: 20120825
  Serious: Yes (Other)
  Sender: FDA-Public Use
  Company Number: PHHY2012PK042405

PATIENT
  Age: 50 Year
  Sex: Female
  Weight: 85 kg

DRUGS (1)
  1. EXFORGE HCT [Suspect]
     Dosage: 1 DF(VALS 160 MG/AMLO 10 MG/ HYDRO 12.5 MG)/ QD
     Route: 048
     Dates: start: 20120119, end: 20120507

REACTIONS (3)
  - HYPERSENSITIVITY [None]
  - OEDEMA [None]
  - SWELLING [None]
